FAERS Safety Report 6636288-6 (Version None)
Quarter: 2010Q1

REPORT INFORMATION
  Report Type: 
  Country: None (occurrence: None)
  Receive Date: 20100316
  Receipt Date: 20100301
  Transmission Date: 20100710
  Serious: Yes (Disabling)
  Sender: FDA-Public Use
  Company Number: NO-ASTRAZENECA-2010SE08802

PATIENT
  Age: 16982 Day
  Sex: Female

DRUGS (3)
  1. XYLOCAINE [Suspect]
     Route: 014
     Dates: start: 20090920
  2. XYLOCAINE [Suspect]
     Route: 058
     Dates: start: 20090920
  3. OMNISCAN [Suspect]
     Indication: ARTHROGRAM
     Route: 042
     Dates: start: 20090920

REACTIONS (4)
  - ANXIETY DISORDER [None]
  - ASTHENIA [None]
  - FATIGUE [None]
  - TREMOR [None]
